FAERS Safety Report 19575723 (Version 2)
Quarter: 2021Q3

REPORT INFORMATION
  Report Type: Report from Study
  Country: US (occurrence: US)
  Receive Date: 20210719
  Receipt Date: 20210816
  Transmission Date: 20211014
  Serious: No
  Sender: FDA-Public Use
  Company Number: US-ASTRAZENECA-2021A625490

PATIENT
  Age: 892 Month
  Sex: Female

DRUGS (5)
  1. DALIRESP [Suspect]
     Active Substance: ROFLUMILAST
     Indication: CHRONIC OBSTRUCTIVE PULMONARY DISEASE
     Route: 048
     Dates: start: 202106
  2. FASENRA [Suspect]
     Active Substance: BENRALIZUMAB
     Indication: ASTHMA
     Route: 058
     Dates: start: 2021
  3. FASENRA [Suspect]
     Active Substance: BENRALIZUMAB
     Indication: BRONCHITIS
     Route: 058
     Dates: start: 2021
  4. FASENRA [Suspect]
     Active Substance: BENRALIZUMAB
     Indication: CHRONIC OBSTRUCTIVE PULMONARY DISEASE
     Route: 058
     Dates: start: 2021
  5. DALIRESP [Suspect]
     Active Substance: ROFLUMILAST
     Indication: CHRONIC OBSTRUCTIVE PULMONARY DISEASE
     Route: 048
     Dates: start: 202106

REACTIONS (5)
  - Product distribution issue [Not Recovered/Not Resolved]
  - Peripheral swelling [Not Recovered/Not Resolved]
  - Inappropriate schedule of product administration [Unknown]
  - Tremor [Not Recovered/Not Resolved]
  - Feeling abnormal [Not Recovered/Not Resolved]

NARRATIVE: CASE EVENT DATE: 202107
